FAERS Safety Report 8856921 (Version 1)
Quarter: 2012Q4

REPORT INFORMATION
  Report Type: Spontaneous
  Country: US (occurrence: None)
  Receive Date: 20121023
  Receipt Date: 20121023
  Transmission Date: 20130627
  Serious: Yes (Disabling)
  Sender: FDA-Public Use
  Company Number: None

PATIENT
  Age: 30 Year
  Sex: Male
  Weight: 89.36 kg

DRUGS (1)
  1. REMICADE [Suspect]
     Indication: ULCERATIVE COLITIS
     Dates: start: 20111101, end: 20120501

REACTIONS (3)
  - Polyarthritis [None]
  - Antinuclear antibody increased [None]
  - Rash [None]
